FAERS Safety Report 8576193-1 (Version None)
Quarter: 2012Q3

REPORT INFORMATION
  Report Type: 
  Country: None (occurrence: None)
  Receive Date: 20120807
  Receipt Date: 20120731
  Transmission Date: 20120928
  Serious: No
  Sender: FDA-Public Use
  Company Number: US-B.I. PHARMACEUTICALS,INC./RIDGEFIELD-2012-BP-17287BP

PATIENT
  Sex: Male

DRUGS (5)
  1. TRILIPIX [Concomitant]
     Indication: BLOOD CHOLESTEROL INCREASED
     Dosage: 135 MG
     Route: 048
  2. METFORMIN HYDROCHLORIDE [Concomitant]
     Indication: DIABETES MELLITUS
     Dosage: 500 MG
     Route: 048
  3. SPIRIVA [Suspect]
     Indication: DYSPNOEA
     Dosage: 18 MCG
     Route: 048
     Dates: start: 20120731, end: 20120731
  4. LISINOPRIL [Concomitant]
     Indication: HYPERTENSION
     Dosage: 10 MG
     Route: 048
  5. SPIRIVA [Suspect]
     Dosage: 18 MCG
     Route: 055
     Dates: start: 20110101

REACTIONS (4)
  - INCORRECT ROUTE OF DRUG ADMINISTRATION [None]
  - BACK PAIN [None]
  - URINARY TRACT DISORDER [None]
  - MUSCLE DISORDER [None]
